FAERS Safety Report 15739633 (Version 1)
Quarter: 2018Q4

REPORT INFORMATION
  Report Type: Spontaneous
  Country: DE (occurrence: DE)
  Receive Date: 20181219
  Receipt Date: 20181219
  Transmission Date: 20190205
  Serious: Yes (Hospitalization)
  Sender: FDA-Public Use
  Company Number: PHHY2018DE186925

PATIENT
  Age: 40 Year
  Sex: Female

DRUGS (5)
  1. TAFINLAR [Suspect]
     Active Substance: DABRAFENIB MESYLATE
     Indication: COLORECTAL CANCER
     Dosage: 300 MG, UNK
     Route: 065
     Dates: start: 201812
  2. VECTIBIX [Concomitant]
     Active Substance: PANITUMUMAB
     Indication: PRODUCT USED FOR UNKNOWN INDICATION
     Dosage: UNK (EVERY 2 WEEKS)
     Route: 042
  3. MEKINIST [Suspect]
     Active Substance: TRAMETINIB DIMETHYL SULFOXIDE
     Indication: METASTASES TO LYMPH NODES
  4. MEKINIST [Suspect]
     Active Substance: TRAMETINIB DIMETHYL SULFOXIDE
     Indication: COLORECTAL CANCER
     Dosage: 2 MG, UNK
     Route: 065
     Dates: start: 201812
  5. TAFINLAR [Suspect]
     Active Substance: DABRAFENIB MESYLATE
     Indication: METASTASES TO LYMPH NODES

REACTIONS (6)
  - Abdominal pain [Unknown]
  - Pain [Unknown]
  - Calculus bladder [Unknown]
  - Pneumonia [Unknown]
  - Back pain [Unknown]
  - Erythema [Unknown]

NARRATIVE: CASE EVENT DATE: 20181210
